FAERS Safety Report 4877202-3 (Version None)
Quarter: 2005Q4

REPORT INFORMATION
  Report Type: 
  Country: None (occurrence: None)
  Receive Date: 20051206
  Receipt Date: 20050922
  Transmission Date: 20060501
  Serious: No
  Sender: FDA-Public Use
  Company Number: USA0509109219

PATIENT
  Sex: Female

DRUGS (2)
  1. CYMBALTA [Suspect]
     Dosage: 60 MG
     Dates: start: 20050803, end: 20050907
  2. SUBOXONE [Concomitant]

REACTIONS (3)
  - DYSKINESIA [None]
  - INSOMNIA [None]
  - MUSCLE TWITCHING [None]
